FAERS Safety Report 6599298-3 (Version None)
Quarter: 2010Q1

REPORT INFORMATION
  Report Type: 
  Country: None (occurrence: None)
  Receive Date: 20100217
  Receipt Date: 20100201
  Transmission Date: 20100710
  Serious: Yes (Hospitalization)
  Sender: FDA-Public Use
  Company Number: 006147

PATIENT
  Age: 43 Year
  Sex: Female

DRUGS (6)
  1. VIMPAT [Suspect]
     Dosage: (25 MG BID), (200 MG BID)
  2. KEPPRA [Suspect]
     Dosage: (UPTIRATED BEYOUND 250 MG)
  3. TOPAMAX [Suspect]
     Dosage: (150 MG BID, 2X150 MG), (DOSE IS DOWNTITRATED)
  4. LYRICA [Concomitant]
  5. RIVOTRIL [Concomitant]
  6. ZONEGRAN [Concomitant]

REACTIONS (11)
  - ANXIETY [None]
  - ASTROCYTOMA [None]
  - DISTURBANCE IN ATTENTION [None]
  - HALLUCINATION, VISUAL [None]
  - INSOMNIA [None]
  - MEMORY IMPAIRMENT [None]
  - MENTAL DISORDER [None]
  - PARAESTHESIA [None]
  - PRURITUS [None]
  - SKIN LESION [None]
  - SUICIDAL IDEATION [None]
